FAERS Safety Report 20451747 (Version 9)
Quarter: 2023Q1

REPORT INFORMATION
  Report Type: Report from Study
  Country: BR (occurrence: BR)
  Receive Date: 20220209
  Receipt Date: 20230125
  Transmission Date: 20230417
  Serious: Yes (Death, Hospitalization)
  Sender: FDA-Public Use
  Company Number: BR-JNJFOC-20211235671

PATIENT
  Age: 66 Year
  Sex: Female
  Weight: 70 kg

DRUGS (23)
  1. AMIVANTAMAB [Suspect]
     Active Substance: AMIVANTAMAB
     Indication: Non-small cell lung cancer metastatic
     Route: 042
     Dates: start: 20211206, end: 20211207
  2. ATENOLOL [Concomitant]
     Active Substance: ATENOLOL
     Indication: Hypertension
     Route: 048
     Dates: start: 20110101
  3. LOSARTAN [Concomitant]
     Active Substance: LOSARTAN
     Indication: Hypertension
     Route: 048
     Dates: start: 20110101
  4. AMLODIPINE [Concomitant]
     Active Substance: AMLODIPINE BESYLATE
     Indication: Hypertension
     Route: 048
     Dates: start: 20110101
  5. LEVOTHYROXINE [Concomitant]
     Active Substance: LEVOTHYROXINE
     Indication: Hypothyroidism
     Route: 048
     Dates: start: 20170101
  6. BETAHISTINE [Concomitant]
     Active Substance: BETAHISTINE
     Indication: Labyrinthitis
     Route: 048
     Dates: start: 20180101
  7. METFORMIN [Concomitant]
     Active Substance: METFORMIN HYDROCHLORIDE
     Indication: Type 2 diabetes mellitus
     Route: 048
     Dates: start: 20110101
  8. OMEPRAZOLE [Concomitant]
     Active Substance: OMEPRAZOLE
     Indication: Gastrooesophageal reflux prophylaxis
     Route: 048
     Dates: start: 20110101
  9. SERTRALINE [Concomitant]
     Active Substance: SERTRALINE HYDROCHLORIDE
     Indication: Depression
     Dosage: ROUTE OF ADMINISTRATION REPORTED AS OPHTHALMIC
     Dates: start: 20170101
  10. MORPHINE [Concomitant]
     Active Substance: MORPHINE
     Indication: Dyspnoea
     Route: 048
     Dates: start: 20211211, end: 20211211
  11. MORPHINE [Concomitant]
     Active Substance: MORPHINE
     Indication: Acute myocardial infarction
     Route: 042
     Dates: start: 20220115, end: 20220117
  12. MORPHINE [Concomitant]
     Active Substance: MORPHINE
     Indication: Cancer pain
  13. MORPHINE [Concomitant]
     Active Substance: MORPHINE
     Indication: Adverse drug reaction
  14. DIPHENHYDRAMINE [Concomitant]
     Active Substance: DIPHENHYDRAMINE
     Indication: Infusion related reaction
     Route: 042
     Dates: start: 20211206, end: 20211206
  15. HYDROCORTISONE [Concomitant]
     Active Substance: HYDROCORTISONE
     Indication: Infusion related reaction
     Route: 042
     Dates: start: 20211206, end: 20211206
  16. ASPIRIN [Concomitant]
     Active Substance: ASPIRIN
     Indication: Acute myocardial infarction
     Route: 048
     Dates: start: 20211211, end: 20211211
  17. CLOPIDOGREL [Concomitant]
     Active Substance: CLOPIDOGREL BISULFATE
     Indication: Acute myocardial infarction
     Route: 048
     Dates: start: 20211211, end: 20211211
  18. DIPYRONE [Concomitant]
     Active Substance: DIPYRONE
     Indication: Cancer pain
     Route: 042
     Dates: start: 20211206, end: 20211207
  19. DIPYRONE [Concomitant]
     Active Substance: DIPYRONE
     Route: 048
     Dates: start: 20211025, end: 20211130
  20. DIPYRONE [Concomitant]
     Active Substance: DIPYRONE
     Route: 048
     Dates: start: 20211117, end: 20211130
  21. DEXAMETHASONE [Concomitant]
     Active Substance: DEXAMETHASONE
     Indication: Cancer pain
     Route: 048
     Dates: start: 20211201
  22. PREGABALIN [Concomitant]
     Active Substance: PREGABALIN
     Indication: Cancer pain
     Route: 048
     Dates: start: 20211201
  23. CEFAZOLIN [Concomitant]
     Active Substance: CEFAZOLIN
     Indication: Prophylaxis
     Route: 042
     Dates: start: 20211102, end: 20211203

REACTIONS (4)
  - Pulmonary embolism [Not Recovered/Not Resolved]
  - Pericardial effusion [Fatal]
  - Cancer pain [Recovered/Resolved]
  - Muscle rupture [Recovering/Resolving]

NARRATIVE: CASE EVENT DATE: 20211212
